FAERS Safety Report 6308853-7 (Version None)
Quarter: 2009Q3

REPORT INFORMATION
  Report Type: 
  Country: None (occurrence: None)
  Receive Date: 20090813
  Receipt Date: 20081125
  Transmission Date: 20100115
  Serious: No
  Sender: FDA-Public Use
  Company Number: US-ALLERGAN-0815039US

PATIENT
  Age: 65 Year
  Sex: Female

DRUGS (2)
  1. COMBIGAN [Suspect]
     Indication: GLAUCOMA
     Dosage: UNK, UNKNOWN
     Route: 047
     Dates: start: 20080905
  2. COMBIGAN [Suspect]
     Dosage: UNK, UNKNOWN
     Route: 047
     Dates: start: 20081008

REACTIONS (3)
  - DRY EYE [None]
  - EYE PRURITUS [None]
  - OCULAR HYPERAEMIA [None]
